FAERS Safety Report 11868147 (Version 2)
Quarter: 2016Q2

REPORT INFORMATION
  Report Type: Spontaneous
  Country: US (occurrence: US)
  Receive Date: 20151224
  Receipt Date: 20160408
  Transmission Date: 20160815
  Serious: Yes (Other)
  Sender: FDA-Public Use
  Company Number: US-TAKEDA-2015TUS018636

PATIENT
  Age: 69 Year
  Sex: Female
  Weight: 68.93 kg

DRUGS (8)
  1. RITALIN [Concomitant]
     Active Substance: METHYLPHENIDATE HYDROCHLORIDE
     Indication: ATTENTION DEFICIT/HYPERACTIVITY DISORDER
     Dosage: 10 MG, QD
     Dates: start: 20110117
  2. SYNTHROID [Concomitant]
     Active Substance: LEVOTHYROXINE SODIUM
     Indication: HYPOTHYROIDISM
     Dosage: 0.05 MG, UNK
     Dates: start: 20110117
  3. TRINTELLIX [Suspect]
     Active Substance: VORTIOXETINE HYDROBROMIDE
     Indication: BIPOLAR II DISORDER
     Dosage: 5 MG, QD
     Route: 048
     Dates: start: 20150824
  4. TRINTELLIX [Suspect]
     Active Substance: VORTIOXETINE HYDROBROMIDE
     Dosage: 10 MG, BID
     Route: 048
     Dates: start: 20151120
  5. BUSPAR [Concomitant]
     Active Substance: BUSPIRONE HYDROCHLORIDE
     Indication: ANXIETY
     Dosage: 50 MG, BID
     Dates: start: 20110117, end: 20150831
  6. TRINTELLIX [Suspect]
     Active Substance: VORTIOXETINE HYDROBROMIDE
     Dosage: 5 MG, BID
     Route: 048
  7. PROZAC [Concomitant]
     Active Substance: FLUOXETINE HYDROCHLORIDE
     Indication: AFFECTIVE DISORDER
     Dosage: 20 MG, UNK
     Dates: start: 20110117
  8. ABILIFY [Concomitant]
     Active Substance: ARIPIPRAZOLE
     Indication: AFFECTIVE DISORDER
     Dosage: 5 MG, UNK
     Dates: start: 20110117

REACTIONS (4)
  - Cataract [Not Recovered/Not Resolved]
  - Vitreous adhesions [Unknown]
  - Off label use [Not Recovered/Not Resolved]
  - Macular hole [Unknown]

NARRATIVE: CASE EVENT DATE: 201506
